FAERS Safety Report 9270355 (Version 1)
Quarter: 2013Q2

REPORT INFORMATION
  Report Type: Spontaneous
  Country: US (occurrence: US)
  Receive Date: 20130503
  Receipt Date: 20130503
  Transmission Date: 20140414
  Serious: Yes (Death)
  Sender: FDA-Public Use
  Company Number: CHPA2013US007549

PATIENT
  Sex: Male

DRUGS (1)
  1. DOAN^S EXTRA STRENGTH [Suspect]
     Indication: BACK PAIN
     Dosage: UNK, UNK
     Route: 048

REACTIONS (1)
  - Death [Fatal]
